FAERS Safety Report 5455948-6 (Version None)
Quarter: 2007Q3

REPORT INFORMATION
  Report Type: 
  Country: None (occurrence: None)
  Receive Date: 20070918
  Receipt Date: 20070911
  Transmission Date: 20080115
  Serious: Yes (Other)
  Sender: FDA-Public Use
  Company Number: PHEH2006US11018

PATIENT
  Age: 71 Year
  Sex: Female

DRUGS (13)
  1. COMTAN [Suspect]
     Indication: PARKINSON'S DISEASE
     Dosage: 100 MG, QID
     Route: 048
  2. COMTAN [Suspect]
     Dosage: 100 MG, BID
     Route: 048
  3. COMTAN [Suspect]
     Dosage: 200 MG, QID
     Route: 048
     Dates: start: 20000824, end: 20060825
  4. SINEMET [Concomitant]
     Indication: PARKINSON'S DISEASE
     Dosage: 1-1/2 TABS QID
     Route: 048
  5. PRAMIPEXOLE DIHYDROCHLORIDE [Concomitant]
     Indication: PARKINSON'S DISEASE
     Dosage: 0.25 UNK, TID
     Route: 048
  6. SELEGILINE HCL [Concomitant]
     Indication: PARKINSON'S DISEASE
     Dosage: 5 UNK, QD
     Route: 048
  7. TRIHEXYPHENIDYL HCL [Concomitant]
     Indication: PARKINSON'S DISEASE
     Dosage: 10 UNK, BID
     Route: 048
  8. AMLODIPINE [Concomitant]
     Indication: HYPERTENSION
     Dosage: 5 UNK, QD
     Route: 048
  9. METOPROLOL - SLOW RELEASE [Concomitant]
     Indication: HYPERTENSION
     Dosage: 25 UNK, QD
  10. ETODOLAC [Concomitant]
     Indication: ARTHRALGIA
     Dosage: 300 UNK, QD
     Route: 048
  11. PROTRIPTYLINE [Concomitant]
     Indication: PARKINSON'S DISEASE
     Dosage: 5 UNK, BID
     Route: 048
  12. LOPERAMIDE HCL [Concomitant]
     Indication: DIARRHOEA
     Dosage: 2 PRN
     Route: 048
  13. M.V.I. [Concomitant]
     Dosage: UNK, QD
     Route: 048

REACTIONS (5)
  - BLOOD PRESSURE INCREASED [None]
  - FEELING JITTERY [None]
  - HOT FLUSH [None]
  - PALPITATIONS [None]
  - VISION BLURRED [None]
